FAERS Safety Report 24565328 (Version 1)
Quarter: 2024Q4

REPORT INFORMATION
  Report Type: Spontaneous
  Country: CA (occurrence: CA)
  Receive Date: 20241030
  Receipt Date: 20241030
  Transmission Date: 20250115
  Serious: Yes (Death, Other)
  Sender: OTSUKA
  Company Number: CA-OTSUKA-2024_029310

PATIENT
  Age: 77 Year
  Sex: Male

DRUGS (4)
  1. REXULTI [Suspect]
     Active Substance: BREXPIPRAZOLE
     Indication: Product used for unknown indication
     Dosage: UNK
     Route: 065
  2. REXULTI [Suspect]
     Active Substance: BREXPIPRAZOLE
     Dosage: TITRATED UPTO 1 MG
     Route: 065
  3. LORAZEPAM [Concomitant]
     Active Substance: LORAZEPAM
     Indication: Product used for unknown indication
     Dosage: UNK
     Route: 065
  4. HALDOL [Concomitant]
     Active Substance: HALOPERIDOL
     Indication: Product used for unknown indication
     Dosage: 1 MG
     Route: 065

REACTIONS (4)
  - Death [Fatal]
  - Dystonia [Unknown]
  - Neuroleptic malignant syndrome [Unknown]
  - Pyrexia [Unknown]
